FAERS Safety Report 25833834 (Version 1)
Quarter: 2025Q3

REPORT INFORMATION
  Report Type: Spontaneous
  Country: US (occurrence: US)
  Receive Date: 20250923
  Receipt Date: 20250923
  Transmission Date: 20251020
  Serious: No
  Sender: ELI LILLY AND COMPANY
  Company Number: US-ELI_LILLY_AND_COMPANY-US202509016836

PATIENT
  Age: 51 Year
  Sex: Female

DRUGS (8)
  1. EMGALITY [Suspect]
     Active Substance: GALCANEZUMAB-GNLM
     Indication: Product used for unknown indication
     Dosage: 120 MG, MONTHLY (1/M)
     Route: 065
  2. WEGOVY [Concomitant]
     Active Substance: SEMAGLUTIDE
     Indication: Obesity
     Route: 065
     Dates: start: 20250908
  3. ZOLOFT [Concomitant]
     Active Substance: SERTRALINE HYDROCHLORIDE
     Indication: Anxiety
     Route: 065
     Dates: start: 20250909
  4. CLONIDINE [Concomitant]
     Active Substance: CLONIDINE
     Indication: Hypertension
     Route: 065
  5. PRISTIQ EXTENDED-RELEASE [Concomitant]
     Active Substance: DESVENLAFAXINE SUCCINATE
     Indication: Depression
     Route: 065
  6. LOSARTAN POTASSIUM [Concomitant]
     Active Substance: LOSARTAN POTASSIUM
     Indication: Blood pressure abnormal
     Route: 065
  7. METOPROLOL [Concomitant]
     Active Substance: METOPROLOL
     Indication: Blood pressure abnormal
     Route: 065
  8. SPIRONOLACTONE [Concomitant]
     Active Substance: SPIRONOLACTONE
     Indication: Blood pressure abnormal
     Route: 065

REACTIONS (1)
  - Injection site urticaria [Recovered/Resolved]
